FAERS Safety Report 9102110 (Version 1)
Quarter: 2013Q1

REPORT INFORMATION
  Report Type: Spontaneous
  Country: US (occurrence: US)
  Receive Date: 20130218
  Receipt Date: 20130218
  Transmission Date: 20140127
  Serious: Yes (Hospitalization)
  Sender: FDA-Public Use
  Company Number: US-ELI_LILLY_AND_COMPANY-US201301004625

PATIENT
  Sex: Female

DRUGS (17)
  1. CYMBALTA [Suspect]
     Indication: DEPRESSION
     Dosage: 60 MG, QD
     Dates: start: 2008
  2. CYMBALTA [Suspect]
     Dosage: 30 MG, QD
     Dates: start: 2008
  3. LISINOPRIL [Concomitant]
     Dosage: UNK, UNKNOWN
  4. LOSARTAN [Concomitant]
     Dosage: UNK, UNKNOWN
  5. COUMADIN [Concomitant]
     Dosage: UNK, UNKNOWN
  6. KLOR-CON [Concomitant]
     Dosage: UNK, UNKNOWN
  7. LASIX [Concomitant]
     Dosage: UNK, UNKNOWN
  8. SYNTHROID [Concomitant]
     Dosage: UNK, UNKNOWN
  9. TIZANIDINE [Concomitant]
     Dosage: UNK, UNKNOWN
  10. MAGNESIUM [Concomitant]
     Dosage: UNK, UNKNOWN
  11. VITAMIN D [Concomitant]
     Dosage: UNK, UNKNOWN
  12. VITAMIN B12 [Concomitant]
     Dosage: UNK, UNKNOWN
  13. ZETIA [Concomitant]
     Dosage: UNK, UNKNOWN
  14. EFFIENT [Concomitant]
     Dosage: UNK, UNKNOWN
  15. OXYCODONE [Concomitant]
     Dosage: UNK, UNKNOWN
  16. FENTANYL [Concomitant]
     Dosage: UNK, UNKNOWN
  17. ALLEGRA [Concomitant]
     Dosage: UNK, PRN

REACTIONS (2)
  - Myocardial infarction [Unknown]
  - Cardiac failure [Unknown]
